FAERS Safety Report 22639733 (Version 1)
Quarter: 2023Q2

REPORT INFORMATION
  Report Type: Spontaneous
  Country: FR (occurrence: FR)
  Receive Date: 20230626
  Receipt Date: 20230626
  Transmission Date: 20230722
  Serious: Yes (Other)
  Sender: FDA-Public Use
  Company Number: None

PATIENT
  Age: 56 Year
  Sex: Female

DRUGS (4)
  1. ACYCLOVIR [Suspect]
     Active Substance: ACYCLOVIR
     Indication: Meningoencephalitis herpetic
     Dosage: 10 MILLIGRAM/KILOGRAM, QH
     Route: 042
     Dates: start: 20230527
  2. ACYCLOVIR [Suspect]
     Active Substance: ACYCLOVIR
     Dosage: 15 MILLIGRAM/KILOGRAM, QH
     Route: 042
     Dates: start: 20230519, end: 20230526
  3. LOVENOX [Concomitant]
     Active Substance: ENOXAPARIN SODIUM
     Dosage: 1 DOSAGE FORM, QD 1 TO 4 G/DAY
     Route: 058
     Dates: start: 20230519
  4. ACETAMINOPHEN [Concomitant]
     Active Substance: ACETAMINOPHEN
     Dosage: UNK 1 TO 4 G/DAY
     Route: 042
     Dates: start: 20230519

REACTIONS (1)
  - Acute kidney injury [Recovered/Resolved]

NARRATIVE: CASE EVENT DATE: 20230526
